FAERS Safety Report 11412602 (Version 1)
Quarter: 2015Q3

REPORT INFORMATION
  Report Type: Spontaneous
  Country: US (occurrence: US)
  Receive Date: 20150821
  Receipt Date: 20150821
  Transmission Date: 20151125
  Serious: No
  Sender: FDA-Public Use
  Company Number: US-ELI_LILLY_AND_COMPANY-US201204009592

PATIENT
  Age: 72 Year
  Sex: Female

DRUGS (2)
  1. HUMULIN N [Suspect]
     Active Substance: INSULIN HUMAN
     Indication: DIABETES MELLITUS
     Dosage: 15 U, BID
  2. HUMULIN N [Suspect]
     Active Substance: INSULIN HUMAN
     Dosage: 15 U, BID

REACTIONS (11)
  - Renal pain [Unknown]
  - Fatigue [Unknown]
  - Product packaging quantity issue [Unknown]
  - Blood glucose increased [Unknown]
  - Asthenia [Unknown]
  - Faecal incontinence [Unknown]
  - Urinary incontinence [Unknown]
  - Pyrexia [Unknown]
  - Renal disorder [Unknown]
  - Blood glucose decreased [Unknown]
  - Malaise [Unknown]

NARRATIVE: CASE EVENT DATE: 201204
